FAERS Safety Report 8384903-1 (Version None)
Quarter: 2012Q2

REPORT INFORMATION
  Report Type: 
  Country: None (occurrence: None)
  Receive Date: 20120524
  Receipt Date: 20120518
  Transmission Date: 20120825
  Serious: Yes (Hospitalization)
  Sender: FDA-Public Use
  Company Number: JP-B.I. PHARMACEUTICALS,INC./RIDGEFIELD-2012-BP-10241NB

PATIENT
  Sex: Male
  Weight: 56.7 kg

DRUGS (9)
  1. VOLTAREN-XR [Concomitant]
     Dosage: 75 MG
     Route: 048
     Dates: start: 20051024
  2. DEPAS [Concomitant]
     Dosage: 0.5 MG
     Route: 048
     Dates: start: 20051024
  3. AMLODIPINE [Concomitant]
     Indication: HYPERTENSION
     Dosage: 2.5 MG
     Route: 048
     Dates: start: 20051219
  4. MAGMITT [Concomitant]
     Indication: CONSTIPATION
     Dosage: 990 MG
     Route: 048
     Dates: start: 20081027
  5. TAMSULOSIN HCL [Concomitant]
     Indication: BENIGN PROSTATIC HYPERPLASIA
     Dosage: 0.2 MG
     Route: 048
     Dates: start: 20051029
  6. FAMOTIDINE [Concomitant]
     Dosage: 40 MG
     Route: 048
     Dates: start: 20051024
  7. SPIRIVA [Suspect]
     Indication: CHRONIC OBSTRUCTIVE PULMONARY DISEASE
     Dosage: 5 MCG
     Route: 055
     Dates: start: 20120406, end: 20120427
  8. CIBENOL [Concomitant]
     Indication: ATRIAL FIBRILLATION
     Dosage: 50 MG
     Route: 048
     Dates: start: 20081027
  9. MUCOSOLVAN [Concomitant]
     Indication: CHRONIC OBSTRUCTIVE PULMONARY DISEASE
     Dosage: 45 MG
     Route: 048
     Dates: start: 20111216

REACTIONS (1)
  - EOSINOPHILIC PNEUMONIA [None]
